FAERS Safety Report 9170748 (Version 2)
Quarter: 2013Q2

REPORT INFORMATION
  Report Type: Spontaneous
  Country: PT (occurrence: None)
  Receive Date: 20130312
  Receipt Date: 20130425
  Transmission Date: 20140414
  Serious: Yes (Hospitalization, Disabling)
  Sender: FDA-Public Use
  Company Number: 2013P1002886

PATIENT
  Age: 86 Year
  Sex: Female

DRUGS (1)
  1. AMIODARONE [Suspect]
     Route: 042
     Dates: start: 20130115, end: 20130116

REACTIONS (1)
  - Catheter site inflammation [None]
